FAERS Safety Report 6459911-8 (Version None)
Quarter: 2009Q4

REPORT INFORMATION
  Report Type: 
  Country: None (occurrence: None)
  Receive Date: 20091129
  Receipt Date: 20091116
  Transmission Date: 20100525
  Serious: Yes (Hospitalization)
  Sender: FDA-Public Use
  Company Number: PHHY2009JP44022

PATIENT
  Sex: Female

DRUGS (5)
  1. EXJADE [Suspect]
     Indication: MYELODYSPLASTIC SYNDROME
     Dosage: 1000 MG DAILY
     Route: 048
     Dates: start: 20090925, end: 20091009
  2. EXJADE [Suspect]
     Indication: IRON OVERLOAD
  3. BEZATATE [Concomitant]
     Indication: HYPERLIPIDAEMIA
     Dosage: 400 MG, UNK
     Route: 048
  4. EPADEL [Concomitant]
     Indication: HYPERLIPIDAEMIA
     Dosage: 300 MG, UNK
     Route: 048
  5. NICORANDIL [Concomitant]
     Indication: ANGINA PECTORIS
     Dosage: 15 MG, UNK
     Route: 048

REACTIONS (3)
  - HEPATIC ADENOMA [None]
  - HEPATOMEGALY [None]
  - LIVER DISORDER [None]
